FAERS Safety Report 6518269-6 (Version None)
Quarter: 2009Q4

REPORT INFORMATION
  Report Type: 
  Country: None (occurrence: None)
  Receive Date: 20091222
  Receipt Date: 20091222
  Transmission Date: 20100525
  Serious: Yes (Other)
  Sender: FDA-Public Use
  Company Number: None

PATIENT
  Age: 52 Year
  Sex: Female

DRUGS (1)
  1. TOPIRAMATE [Suspect]
     Indication: HEADACHE
     Dosage: 1 PO QHS
     Route: 048

REACTIONS (4)
  - APPETITE DISORDER [None]
  - FALL [None]
  - HEADACHE [None]
  - PRODUCT SUBSTITUTION ISSUE [None]
